FAERS Safety Report 17118541 (Version 1)
Quarter: 2019Q4

REPORT INFORMATION
  Report Type: Spontaneous
  Country: IE (occurrence: IE)
  Receive Date: 20191205
  Receipt Date: 20191205
  Transmission Date: 20200122
  Serious: Yes (Other)
  Sender: FDA-Public Use
  Company Number: IE-LUPIN PHARMACEUTICALS INC.-2019-08062

PATIENT
  Age: 24 Year
  Sex: Female

DRUGS (2)
  1. TESTOSTERONE. [Suspect]
     Active Substance: TESTOSTERONE
     Indication: HORMONE THERAPY
     Dosage: 50 MILLIGRAM, QD
     Route: 061
  2. ZOLADEX [Concomitant]
     Active Substance: GOSERELIN ACETATE
     Indication: PRODUCT USED FOR UNKNOWN INDICATION
     Dosage: 10.8 MILLIGRAM (EVERY 3 MONTHS)
     Route: 065

REACTIONS (1)
  - Infertility [Unknown]
